FAERS Safety Report 17189159 (Version 3)
Quarter: 2025Q3

REPORT INFORMATION
  Report Type: Spontaneous
  Country: EU (occurrence: EU)
  Receive Date: 20191223
  Receipt Date: 20250918
  Transmission Date: 20251020
  Serious: Yes (Death, Hospitalization, Other)
  Sender: AUROBINDO
  Company Number: EU-002147023-NVSC2019CZ061484

PATIENT
  Age: 57 Year
  Sex: Female

DRUGS (14)
  1. AMLODIPINE [Suspect]
     Active Substance: AMLODIPINE BESYLATE
     Indication: Product used for unknown indication
     Route: 065
  2. AMLODIPINE [Suspect]
     Active Substance: AMLODIPINE BESYLATE
     Route: 065
  3. METOPROLOL [Suspect]
     Active Substance: METOPROLOL
     Indication: Product used for unknown indication
     Dosage: 25 MILLIGRAM, ONCE A DAY
     Route: 065
  4. CAPECITABINE [Suspect]
     Active Substance: CAPECITABINE
     Indication: Chemotherapy
     Route: 065
  5. DOCETAXEL [Suspect]
     Active Substance: DOCETAXEL
     Indication: Chemotherapy
     Route: 065
  6. DOCETAXEL [Suspect]
     Active Substance: DOCETAXEL
     Indication: Breast cancer
  7. ERIBULIN [Suspect]
     Active Substance: ERIBULIN
     Indication: Chemotherapy
     Route: 065
  8. FULVESTRANT [Suspect]
     Active Substance: FULVESTRANT
     Indication: Hormone therapy
     Route: 065
  9. GEMCITABINE [Suspect]
     Active Substance: GEMCITABINE
     Indication: Chemotherapy
     Route: 065
  10. GEMCITABINE [Suspect]
     Active Substance: GEMCITABINE
     Route: 065
  11. PACLITAXEL [Suspect]
     Active Substance: PACLITAXEL
     Indication: Chemotherapy
     Route: 065
  12. PACLITAXEL [Suspect]
     Active Substance: PACLITAXEL
     Indication: Breast cancer
  13. VINORELBINE [Suspect]
     Active Substance: VINORELBINE TARTRATE
     Indication: Product used for unknown indication
     Dosage: UNK , EVERY WEEK
     Route: 065
  14. LEVOTHYROXINE [Concomitant]
     Active Substance: LEVOTHYROXINE
     Indication: Thyroid cancer
     Route: 065

REACTIONS (11)
  - Pneumothorax [Fatal]
  - Dyspnoea [Fatal]
  - Malignant neoplasm progression [Fatal]
  - Breast cancer [Fatal]
  - Metastases to liver [Unknown]
  - Hepatotoxicity [Unknown]
  - Pulmonary embolism [Unknown]
  - Neuropathy peripheral [Unknown]
  - Blood pressure increased [Unknown]
  - Tachyarrhythmia [Unknown]
  - Fatigue [Unknown]

NARRATIVE: CASE EVENT DATE: 20180501
